FAERS Safety Report 6159726-4 (Version None)
Quarter: 2009Q2

REPORT INFORMATION
  Report Type: 
  Country: None (occurrence: None)
  Receive Date: 20090420
  Receipt Date: 20090409
  Transmission Date: 20091009
  Serious: Yes (Death, Hospitalization)
  Sender: FDA-Public Use
  Company Number: US-JNJFOC-20090204447

PATIENT
  Sex: Female
  Weight: 82.56 kg

DRUGS (5)
  1. REMICADE [Suspect]
     Route: 042
  2. REMICADE [Suspect]
     Indication: RHEUMATOID ARTHRITIS
     Route: 042
  3. METHOTREXATE [Concomitant]
  4. FOLIC ACID [Concomitant]
     Indication: PROPHYLAXIS
  5. MEDROL [Concomitant]
     Indication: ANTIINFLAMMATORY THERAPY

REACTIONS (1)
  - DEATH [None]
